FAERS Safety Report 14294943 (Version 2)
Quarter: 2017Q4

REPORT INFORMATION
  Report Type: Report from Study
  Country: US (occurrence: US)
  Receive Date: 20171218
  Receipt Date: 20171223
  Transmission Date: 20180321
  Serious: Yes (Hospitalization, Other)
  Sender: FDA-Public Use
  Company Number: US-AMGEN-USASP2017184552

PATIENT
  Age: 66 Year
  Sex: Female

DRUGS (1)
  1. PROLIA [Suspect]
     Active Substance: DENOSUMAB
     Indication: OSTEOPOROSIS POSTMENOPAUSAL
     Dosage: 60 MG, Q6MO
     Route: 058
     Dates: start: 2011

REACTIONS (5)
  - Fall [Unknown]
  - Hip fracture [Unknown]
  - Accidental exposure to product [Unknown]
  - Nasopharyngitis [Unknown]
  - Blindness [Unknown]

NARRATIVE: CASE EVENT DATE: 201709
